FAERS Safety Report 20326866 (Version 1)
Quarter: 2022Q1

REPORT INFORMATION
  Report Type: Report from Study
  Country: US (occurrence: US)
  Receive Date: 20220112
  Receipt Date: 20220112
  Transmission Date: 20220423
  Serious: Yes (Hospitalization)
  Sender: FDA-Public Use
  Company Number: US-ACTELION-A-US2019-195711

PATIENT
  Age: 54 Year
  Sex: Female
  Weight: 82.993 kg

DRUGS (2)
  1. OPSUMIT [Suspect]
     Active Substance: MACITENTAN
     Indication: Pulmonary arterial hypertension
     Dosage: 10 MG, QD
     Route: 048
  2. ADEMPAS [Suspect]
     Active Substance: RIOCIGUAT
     Indication: Product used for unknown indication
     Dosage: 2.5 MG, TID
     Route: 065

REACTIONS (12)
  - Influenza [Recovered/Resolved]
  - Catheterisation cardiac [Unknown]
  - Hypoxia [Unknown]
  - Pain [Unknown]
  - Dyspepsia [Unknown]
  - Abdominal discomfort [Unknown]
  - Nausea [Unknown]
  - Smoke sensitivity [Unknown]
  - Herpes zoster [Unknown]
  - Gastrooesophageal reflux disease [Unknown]
  - Ocular hyperaemia [Not Recovered/Not Resolved]
  - Sleep disorder [Unknown]

NARRATIVE: CASE EVENT DATE: 20200101
